FAERS Safety Report 7032078-3 (Version None)
Quarter: 2010Q4

REPORT INFORMATION
  Report Type: 
  Country: None (occurrence: None)
  Receive Date: 20101007
  Receipt Date: 20100503
  Transmission Date: 20110411
  Serious: No
  Sender: FDA-Public Use
  Company Number: US-KINGPHARMUSA00001-K201000536

PATIENT
  Age: 43 Year
  Sex: Male
  Weight: 93.878 kg

DRUGS (7)
  1. SONATA [Suspect]
     Indication: INITIAL INSOMNIA
     Dosage: 5 MG, QHS
     Route: 048
     Dates: start: 20100101
  2. SONATA [Suspect]
     Dosage: 10 MG, QHS
     Route: 048
     Dates: end: 20100301
  3. SONATA [Suspect]
     Dosage: 20 MG, QHS (2, 10 MG CAPSULES)
     Dates: start: 20100301, end: 20100301
  4. SONATA [Suspect]
     Dosage: 300 MG, SINGLE (30, 10 MG CAPSULES)
     Route: 048
     Dates: start: 20100301, end: 20100301
  5. XALATAN [Concomitant]
     Indication: INTRAOCULAR PRESSURE INCREASED
     Dosage: UNK
     Route: 031
  6. ZYRTEC [Concomitant]
     Indication: SEASONAL ALLERGY
     Dosage: UNK
  7. VITAMINS [Concomitant]
     Dosage: UNK

REACTIONS (3)
  - DRUG INEFFECTIVE [None]
  - NO ADVERSE EVENT [None]
  - OVERDOSE [None]
